FAERS Safety Report 7153414-3 (Version None)
Quarter: 2010Q4

REPORT INFORMATION
  Report Type: 
  Country: None (occurrence: None)
  Receive Date: 20101213
  Receipt Date: 20101202
  Transmission Date: 20110411
  Serious: Yes (Other)
  Sender: FDA-Public Use
  Company Number: A0889438A

PATIENT
  Age: 64 Year
  Sex: Female
  Weight: 63.6 kg

DRUGS (6)
  1. TYKERB [Suspect]
     Indication: BREAST CANCER
     Dosage: 1250MG PER DAY
     Route: 048
     Dates: start: 20100923, end: 20101111
  2. XELODA [Suspect]
     Indication: BREAST CANCER
     Dosage: 1500MG TWICE PER DAY
     Route: 048
     Dates: start: 20100923, end: 20101111
  3. KYTRIL [Concomitant]
  4. KEPPRA [Concomitant]
  5. ASPIRIN [Concomitant]
  6. ZOFRAN [Concomitant]

REACTIONS (10)
  - ALOPECIA [None]
  - BLOOD BILIRUBIN INCREASED [None]
  - DIARRHOEA [None]
  - DROOLING [None]
  - DRY SKIN [None]
  - EXCORIATION [None]
  - HYPOKALAEMIA [None]
  - HYPOMAGNESAEMIA [None]
  - OEDEMA PERIPHERAL [None]
  - RHINORRHOEA [None]
